FAERS Safety Report 5590636-7 (Version None)
Quarter: 2008Q1

REPORT INFORMATION
  Report Type: 
  Country: None (occurrence: None)
  Receive Date: 20080114
  Receipt Date: 20080110
  Transmission Date: 20080703
  Serious: Yes (Disabling)
  Sender: FDA-Public Use
  Company Number: DE-MERCK-0801DEU00045

PATIENT
  Age: 65 Year
  Sex: Male
  Weight: 81 kg

DRUGS (2)
  1. ZETIA [Suspect]
     Indication: LIPID METABOLISM DISORDER
     Route: 048
     Dates: start: 20050318
  2. ZOCOR [Suspect]
     Indication: LIPID METABOLISM DISORDER
     Route: 048
     Dates: start: 20050318

REACTIONS (1)
  - VITREOUS DETACHMENT [None]
